FAERS Safety Report 8869079 (Version 1)
Quarter: 2012Q4

REPORT INFORMATION
  Report Type: 
  Country: US (occurrence: US)
  Receive Date: 20121023
  Receipt Date: 20121023
  Transmission Date: 20130627
  Serious: No
  Sender: FDA-Public Use
  Company Number: US-AMGEN-USASP2012053700

PATIENT
  Age: 39 Year
  Sex: Female
  Weight: 106.58 kg

DRUGS (8)
  1. ENBREL [Suspect]
     Indication: PRODUCT USED FOR UNKNOWN INDICATION
     Dosage: 50 mg, qwk
     Route: 058
  2. LAMICTAL [Concomitant]
     Dosage: 25 mg, UNK
  3. MULTIVITAMIN                       /00097801/ [Concomitant]
  4. FOLIC ACID [Concomitant]
  5. EFFEXOR [Concomitant]
     Dosage: 25 mg, UNK
  6. AMBIEN [Concomitant]
     Dosage: 5 mg, UNK
  7. METHOTREXATE [Concomitant]
     Dosage: 2.5 mg, UNK
  8. HYDROXYCHLOROQUINE [Concomitant]
     Dosage: 200 mg, UNK

REACTIONS (2)
  - Eye irritation [Unknown]
  - Ocular hyperaemia [Unknown]
